FAERS Safety Report 20332973 (Version 1)
Quarter: 2022Q1

REPORT INFORMATION
  Report Type: Spontaneous
  Country: US (occurrence: US)
  Receive Date: 20220113
  Receipt Date: 20220113
  Transmission Date: 20220424
  Serious: Yes (Hospitalization)
  Sender: FDA-Public Use
  Company Number: US-NOVARTISPH-NVSC2022US003922

PATIENT
  Age: 61 Year
  Sex: Male

DRUGS (2)
  1. RANITIDINE [Suspect]
     Active Substance: RANITIDINE
     Indication: Abdominal discomfort
     Dosage: 150 MG, 3 TO 5 TIMES A WEEK, AS NEEDED (PRN)
     Route: 048
     Dates: start: 200101, end: 201901
  2. RANITIDINE [Suspect]
     Active Substance: RANITIDINE
     Indication: Abdominal discomfort
     Dosage: 150 MG, 3 TO 5 TIMES A WEEK, AS NEEDED (PRN)
     Route: 048
     Dates: start: 200101, end: 201901

REACTIONS (3)
  - Prostate cancer stage IV [Unknown]
  - Incorrect dose administered [Unknown]
  - Inappropriate schedule of product administration [Unknown]

NARRATIVE: CASE EVENT DATE: 20050601
